FAERS Safety Report 17180719 (Version 1)
Quarter: 2019Q4

REPORT INFORMATION
  Report Type: Spontaneous
  Country: US (occurrence: US)
  Receive Date: 20191219
  Receipt Date: 20191219
  Transmission Date: 20200122
  Serious: Yes (Death, Hospitalization)
  Sender: FDA-Public Use
  Company Number: US-BAUSCH-BL-2019-065119

PATIENT
  Sex: Male

DRUGS (1)
  1. XIFAXAN [Suspect]
     Active Substance: RIFAXIMIN
     Indication: HEPATIC CIRRHOSIS
     Dosage: APPROXIMATELY 3 TO 6 MONTHS AGO
     Route: 048
     Dates: start: 2019

REACTIONS (3)
  - Hospice care [Recovered/Resolved]
  - Renal failure [Fatal]
  - Liver disorder [Fatal]

NARRATIVE: CASE EVENT DATE: 2019
